FAERS Safety Report 9448322 (Version 2)
Quarter: 2013Q3

REPORT INFORMATION
  Report Type: Spontaneous
  Country: US (occurrence: US)
  Receive Date: 20130808
  Receipt Date: 20130815
  Transmission Date: 20140515
  Serious: Yes (Death)
  Sender: FDA-Public Use
  Company Number: US-ASTELLAS-2013US008251

PATIENT
  Age: 86 Year
  Sex: Female

DRUGS (3)
  1. TARCEVA [Suspect]
     Indication: LUNG CARCINOMA CELL TYPE UNSPECIFIED STAGE 0
     Dosage: 25 MG, UID/QD
     Route: 065
     Dates: start: 20121121
  2. TARCEVA [Suspect]
     Indication: LUNG CARCINOMA CELL TYPE UNSPECIFIED STAGE IV
  3. COUMADIN                           /00014802/ [Concomitant]
     Indication: ATRIAL FIBRILLATION
     Dosage: 1 MG, UID/QD
     Route: 048

REACTIONS (2)
  - Incorrect dose administered [Unknown]
  - Death [Fatal]
